FAERS Safety Report 18747036 (Version 2)
Quarter: 2022Q2

REPORT INFORMATION
  Report Type: Report from Study
  Country: CA (occurrence: CA)
  Receive Date: 20210115
  Receipt Date: 20220523
  Transmission Date: 20220720
  Serious: Yes (Hospitalization)
  Sender: FDA-Public Use
  Company Number: CA-PFIZER INC-2021018259

PATIENT
  Sex: Male

DRUGS (12)
  1. RITUXIMAB [Suspect]
     Active Substance: RITUXIMAB
     Indication: Glomerulonephritis membranous
     Dosage: 1000 MG
     Route: 042
  2. APIXABAN [Concomitant]
     Active Substance: APIXABAN
  3. ATORVASTATIN [Concomitant]
     Active Substance: ATORVASTATIN
  4. BENADRYL [Concomitant]
     Active Substance: DIPHENHYDRAMINE HYDROCHLORIDE
     Dosage: 50 MG
     Route: 048
  5. CALCIUM [Concomitant]
     Active Substance: CALCIUM
  6. ENTECAVIR [Concomitant]
     Active Substance: ENTECAVIR
  7. METHYLPREDNISOLONE SODIUM SUCCINATE [Concomitant]
     Active Substance: METHYLPREDNISOLONE SODIUM SUCCINATE
     Dosage: 100 MG
     Route: 042
  8. RISEDRONATE SODIUM [Concomitant]
     Active Substance: RISEDRONATE SODIUM
  9. TYLENOL [Concomitant]
     Active Substance: ACETAMINOPHEN
     Dosage: 1000 MG
     Route: 048
  10. ACETAMINOPHEN [Concomitant]
     Active Substance: ACETAMINOPHEN
     Indication: Premedication
     Dosage: 1000 MG
     Route: 048
  11. PERINDOPRIL [Concomitant]
     Active Substance: PERINDOPRIL
  12. SOLU-MEDROL [Concomitant]
     Active Substance: METHYLPREDNISOLONE SODIUM SUCCINATE
     Indication: Premedication
     Dosage: 100 MG
     Route: 042

REACTIONS (2)
  - Dyspnoea [Not Recovered/Not Resolved]
  - Peripheral swelling [Not Recovered/Not Resolved]
